FAERS Safety Report 15522350 (Version 1)
Quarter: 2018Q4

REPORT INFORMATION
  Report Type: Report from Study
  Country: US (occurrence: US)
  Receive Date: 20181017
  Receipt Date: 20181017
  Transmission Date: 20190205
  Serious: No
  Sender: FDA-Public Use
  Company Number: US-AMGEN-USASL2018110958

PATIENT
  Age: 77 Year
  Sex: Male

DRUGS (1)
  1. REPATHA [Suspect]
     Active Substance: EVOLOCUMAB
     Indication: PRODUCT USED FOR UNKNOWN INDICATION
     Dosage: UNK
     Route: 065
     Dates: end: 201805

REACTIONS (4)
  - Rhinorrhoea [Recovering/Resolving]
  - Mobility decreased [Recovering/Resolving]
  - Dyspnoea [Recovering/Resolving]
  - Injection site erythema [Recovering/Resolving]
